FAERS Safety Report 19653251 (Version 1)
Quarter: 2021Q3

REPORT INFORMATION
  Report Type: Spontaneous
  Country: DE (occurrence: DE)
  Receive Date: 20210803
  Receipt Date: 20210803
  Transmission Date: 20211014
  Serious: Yes (Hospitalization, Other)
  Sender: FDA-Public Use
  Company Number: DE-BRISTOL-MYERS SQUIBB COMPANY-BMS-2021-057046

PATIENT
  Sex: Male
  Weight: 270 kg

DRUGS (1)
  1. ELIQUIS [Suspect]
     Active Substance: APIXABAN
     Indication: CEREBROVASCULAR ACCIDENT PROPHYLAXIS
     Dosage: 7.5 MILLIGRAM, BID
     Route: 048

REACTIONS (4)
  - Condition aggravated [Unknown]
  - Metabolic acidosis [Unknown]
  - Prescribed overdose [Unknown]
  - Conjunctivitis [Unknown]
